FAERS Safety Report 7802645-5 (Version None)
Quarter: 2011Q4

REPORT INFORMATION
  Report Type: 
  Country: None (occurrence: None)
  Receive Date: 20111007
  Receipt Date: 20110930
  Transmission Date: 20120403
  Serious: Yes (Other)
  Sender: FDA-Public Use
  Company Number: PHHY2011VE87978

PATIENT
  Sex: Female

DRUGS (5)
  1. DICETEL [Concomitant]
     Indication: IRRITABLE BOWEL SYNDROME
     Route: 048
  2. ZOLEDRONOC ACID [Suspect]
     Indication: OSTEOPOROSIS
     Dosage: 5 MG, ONCE A YEAR
     Route: 042
  3. ZOLEDRONOC ACID [Suspect]
     Dosage: 5 MG, ONCE A YEAR
     Route: 042
     Dates: start: 20100601
  4. OMEPRAZOLE [Concomitant]
     Indication: GASTRIC DISORDER
     Dosage: 20 MG, UNK
     Route: 048
  5. SIMPLA [Concomitant]
     Indication: OSTEOPOROSIS
     Dosage: 150 MG, UNK

REACTIONS (6)
  - BLOOD PRESSURE INADEQUATELY CONTROLLED [None]
  - MALAISE [None]
  - IRRITABLE BOWEL SYNDROME [None]
  - GASTRIC ULCER [None]
  - HAEMORRHOIDS [None]
  - DIARRHOEA [None]
